FAERS Safety Report 6272681-1 (Version None)
Quarter: 2009Q3

REPORT INFORMATION
  Report Type: 
  Country: None (occurrence: None)
  Receive Date: 20090717
  Receipt Date: 20090709
  Transmission Date: 20100115
  Serious: Yes (Hospitalization)
  Sender: FDA-Public Use
  Company Number: CA-JNJFOC-20090705589

PATIENT
  Sex: Male

DRUGS (21)
  1. TYLENOL (CAPLET) [Suspect]
     Indication: DRUG USE FOR UNKNOWN INDICATION
     Route: 065
  2. ANTICOAGULANT [Suspect]
     Indication: THROMBOSIS PROPHYLAXIS
     Route: 048
  3. WARFARIN SODIUM [Suspect]
     Indication: THROMBOSIS PROPHYLAXIS
     Route: 048
  4. DIGOXIN [Suspect]
     Indication: DRUG USE FOR UNKNOWN INDICATION
     Route: 065
  5. HYDROMORPH [Suspect]
     Indication: DRUG USE FOR UNKNOWN INDICATION
     Route: 065
  6. HYDROCODONE [Suspect]
     Indication: DRUG USE FOR UNKNOWN INDICATION
     Route: 065
  7. VITAMIN B-12 [Concomitant]
  8. MULTIPLE VITAMINS [Concomitant]
  9. FLOMAX [Concomitant]
  10. PREDNISONE [Concomitant]
  11. METOPROLOL TARTRATE [Concomitant]
  12. LASIX [Concomitant]
  13. TRAZODONE HYDROCHLORIDE [Concomitant]
  14. CLONAZEPAM [Concomitant]
  15. ADVAIR HFA [Concomitant]
  16. ZOSTRIX [Concomitant]
  17. NASONEX [Concomitant]
  18. SODIUM FUSIDATE [Concomitant]
  19. VENTOLIN [Concomitant]
  20. CRESTOR [Concomitant]
  21. ASPIRIN [Concomitant]

REACTIONS (4)
  - DEHYDRATION [None]
  - MYOCARDIAL INFARCTION [None]
  - RENAL FAILURE [None]
  - URINARY TRACT INFECTION [None]
